FAERS Safety Report 25772436 (Version 1)
Quarter: 2025Q3

REPORT INFORMATION
  Report Type: Spontaneous
  Country: CN (occurrence: CN)
  Receive Date: 20250908
  Receipt Date: 20250908
  Transmission Date: 20251021
  Serious: Yes (Hospitalization)
  Sender: ACCORD
  Company Number: CN-MLMSERVICE-20250820-PI620177-00077-1

PATIENT
  Age: 43 Year
  Sex: Male
  Weight: 75 kg

DRUGS (4)
  1. CAPECITABINE [Suspect]
     Active Substance: CAPECITABINE
     Indication: Rectal cancer stage III
     Dosage: (2.0 G IN THE MORNING, 1.5 G IN THE EVENING, PO, D1-D14)
     Route: 048
     Dates: start: 20240810
  2. OXALIPLATIN [Suspect]
     Active Substance: OXALIPLATIN
     Indication: Rectal cancer stage III
     Dosage: ON D1
     Route: 042
     Dates: start: 20240810
  3. DEXAMETHASONE [Concomitant]
     Active Substance: DEXAMETHASONE
     Indication: Gastrointestinal disorder prophylaxis
     Dates: start: 20240810
  4. PALONOSETRON HYDROCHLORIDE [Concomitant]
     Active Substance: PALONOSETRON HYDROCHLORIDE
     Indication: Gastrointestinal disorder prophylaxis
     Dates: start: 20240810

REACTIONS (8)
  - Cardiac failure [Recovered/Resolved]
  - Renal injury [Recovered/Resolved]
  - Hepatocellular injury [Recovered/Resolved]
  - Atrioventricular block [Recovering/Resolving]
  - Electrocardiogram ST segment elevation [Recovering/Resolving]
  - Diarrhoea [Unknown]
  - Nausea [Unknown]
  - Tricuspid valve incompetence [Recovering/Resolving]

NARRATIVE: CASE EVENT DATE: 20240801
